FAERS Safety Report 13297612 (Version 1)
Quarter: 2017Q1

REPORT INFORMATION
  Report Type: Spontaneous
  Country: US (occurrence: US)
  Receive Date: 20170305
  Receipt Date: 20170305
  Transmission Date: 20170428
  Serious: Yes (Hospitalization, Other)
  Sender: FDA-Public Use
  Company Number: None

PATIENT
  Age: 7 Year
  Sex: Male
  Weight: 31.5 kg

DRUGS (3)
  1. MULTIVITAMIN [Concomitant]
     Active Substance: VITAMINS
  2. VITAMIN C [Concomitant]
     Active Substance: ASCORBIC ACID
  3. MIRALAX [Suspect]
     Active Substance: POLYETHYLENE GLYCOL 3350
     Indication: CONSTIPATION
     Dosage: 1 TABLESPOON(S) DAILY ORAL
     Route: 048
     Dates: start: 20120101, end: 20140101

REACTIONS (13)
  - Insomnia [None]
  - Scratch [None]
  - Irregular breathing [None]
  - Malaise [None]
  - Paranoia [None]
  - Fear [None]
  - Tremor [None]
  - Haemorrhage [None]
  - Gait disturbance [None]
  - Anger [None]
  - Tic [None]
  - Anxiety [None]
  - Seizure [None]

NARRATIVE: CASE EVENT DATE: 20120101
